FAERS Safety Report 16927265 (Version 1)
Quarter: 2019Q4

REPORT INFORMATION
  Report Type: Spontaneous
  Country: US (occurrence: US)
  Receive Date: 20191016
  Receipt Date: 20191016
  Transmission Date: 20200122
  Serious: No
  Sender: FDA-Public Use
  Company Number: US-OPTINOSE US, INC-2019OPT000859

PATIENT
  Age: 65 Year
  Sex: Female

DRUGS (2)
  1. XHANCE [Suspect]
     Active Substance: FLUTICASONE PROPIONATE
     Indication: EUSTACHIAN TUBE OBSTRUCTION
  2. XHANCE [Suspect]
     Active Substance: FLUTICASONE PROPIONATE
     Indication: RHINITIS
     Route: 045
     Dates: start: 201908

REACTIONS (4)
  - Ear congestion [Unknown]
  - Product use in unapproved indication [Unknown]
  - Nasal congestion [Unknown]
  - Inappropriate schedule of product administration [Unknown]
